FAERS Safety Report 7492722-3 (Version None)
Quarter: 2011Q2

REPORT INFORMATION
  Report Type: 
  Country: None (occurrence: None)
  Receive Date: 20110519
  Receipt Date: 20110513
  Transmission Date: 20111010
  Serious: Yes (Disabling, Other)
  Sender: FDA-Public Use
  Company Number: US-MERCK-1105USA02541

PATIENT
  Sex: Male

DRUGS (1)
  1. FOSAMAX [Suspect]
     Route: 048

REACTIONS (6)
  - OSTEOPOROSIS [None]
  - LOW TURNOVER OSTEOPATHY [None]
  - TIBIA FRACTURE [None]
  - FEMUR FRACTURE [None]
  - STRESS FRACTURE [None]
  - FIBULA FRACTURE [None]
